FAERS Safety Report 25539965 (Version 1)
Quarter: 2025Q3

REPORT INFORMATION
  Report Type: Spontaneous
  Country: EU (occurrence: EU)
  Receive Date: 20250710
  Receipt Date: 20250710
  Transmission Date: 20251020
  Serious: Yes (Other)
  Sender: MYLAN
  Company Number: EU-UCBSA-2025035809

PATIENT
  Age: 42 Year
  Sex: Female

DRUGS (12)
  1. LEVETIRACETAM [Suspect]
     Active Substance: LEVETIRACETAM
     Indication: Lennox-Gastaut syndrome
  2. LEVETIRACETAM [Suspect]
     Active Substance: LEVETIRACETAM
     Route: 065
  3. LEVETIRACETAM [Suspect]
     Active Substance: LEVETIRACETAM
     Route: 065
  4. LEVETIRACETAM [Suspect]
     Active Substance: LEVETIRACETAM
  5. LACOSAMIDE [Suspect]
     Active Substance: LACOSAMIDE
     Indication: Lennox-Gastaut syndrome
  6. LACOSAMIDE [Suspect]
     Active Substance: LACOSAMIDE
     Route: 065
  7. LACOSAMIDE [Suspect]
     Active Substance: LACOSAMIDE
     Route: 065
  8. LACOSAMIDE [Suspect]
     Active Substance: LACOSAMIDE
  9. BRIVARACETAM [Suspect]
     Active Substance: BRIVARACETAM
     Indication: Lennox-Gastaut syndrome
  10. BRIVARACETAM [Suspect]
     Active Substance: BRIVARACETAM
     Route: 065
  11. BRIVARACETAM [Suspect]
     Active Substance: BRIVARACETAM
     Route: 065
  12. BRIVARACETAM [Suspect]
     Active Substance: BRIVARACETAM

REACTIONS (2)
  - Seizure [Unknown]
  - Off label use [Unknown]
